FAERS Safety Report 15844680 (Version 8)
Quarter: 2024Q2

REPORT INFORMATION
  Report Type: Spontaneous
  Country: PL (occurrence: PL)
  Receive Date: 20190118
  Receipt Date: 20240412
  Transmission Date: 20240715
  Serious: Yes (Death, Life-Threatening, Hospitalization, Other)
  Sender: FDA-Public Use
  Company Number: PL-SA-2018SA394641

PATIENT
  Age: 31 Year
  Sex: Male

DRUGS (21)
  1. METHYLPREDNISOLONE SODIUM SUCCINATE [Suspect]
     Active Substance: METHYLPREDNISOLONE SODIUM SUCCINATE
     Indication: Immunosuppression
     Dosage: 120 MG, UNK
  2. MEROPENEM [Suspect]
     Active Substance: MEROPENEM
     Indication: Cytomegalovirus infection
     Dosage: UNK
  3. MEROPENEM [Suspect]
     Active Substance: MEROPENEM
     Indication: Pulmonary fibrosis
  4. MEROPENEM [Suspect]
     Active Substance: MEROPENEM
     Indication: Inflammatory marker increased
  5. LINEZOLID [Suspect]
     Active Substance: LINEZOLID
     Indication: Superinfection bacterial
     Dosage: 300 MG, 2X/DAY
  6. PREDNISONE [Suspect]
     Active Substance: PREDNISONE
     Indication: Transplant rejection
     Dosage: 30 MG, UNK
  7. PREDNISONE [Suspect]
     Active Substance: PREDNISONE
     Indication: Immunosuppression
  8. TACROLIMUS [Suspect]
     Active Substance: TACROLIMUS
     Indication: Immunosuppression
     Dosage: UNK
  9. MYCOPHENOLATE MOFETIL [Suspect]
     Active Substance: MYCOPHENOLATE MOFETIL
     Indication: Transplant rejection
     Dosage: 3 G, 1X/DAY
  10. MYCOPHENOLATE MOFETIL [Suspect]
     Active Substance: MYCOPHENOLATE MOFETIL
     Indication: Immunosuppression
  11. GANCICLOVIR [Suspect]
     Active Substance: GANCICLOVIR
     Indication: Antiviral prophylaxis
     Dosage: 5 MG/KG, 2X/DAY
     Route: 042
  12. GANCICLOVIR [Suspect]
     Active Substance: GANCICLOVIR
     Dosage: 5 MG/KG, 2X/DAY
     Route: 042
  13. GANCICLOVIR [Suspect]
     Active Substance: GANCICLOVIR
     Dosage: 6 MG/KG, 2X/DAY
     Route: 042
  14. GANCICLOVIR [Suspect]
     Active Substance: GANCICLOVIR
     Dosage: 10 MG/KG, 2X/DAY
     Route: 042
  15. FOSCARNET [Suspect]
     Active Substance: FOSCARNET
     Indication: Cytomegalovirus infection
     Dosage: 60 MG/KG, 2X/DAY
  16. FOSCARNET [Suspect]
     Active Substance: FOSCARNET
     Dosage: 60 MG/KG, 3X/DAY
  17. SULFAMETHOXAZOLE\TRIMETHOPRIM [Suspect]
     Active Substance: SULFAMETHOXAZOLE\TRIMETHOPRIM
     Indication: Cytomegalovirus infection
     Dosage: 1140 MG, 3X/DAY
  18. SULFAMETHOXAZOLE\TRIMETHOPRIM [Suspect]
     Active Substance: SULFAMETHOXAZOLE\TRIMETHOPRIM
     Indication: Pulmonary fibrosis
  19. SULFAMETHOXAZOLE\TRIMETHOPRIM [Suspect]
     Active Substance: SULFAMETHOXAZOLE\TRIMETHOPRIM
     Indication: Inflammatory marker increased
  20. COLISTIN [Suspect]
     Active Substance: COLISTIN
     Indication: Superinfection bacterial
     Dosage: NEBULIZED COLISTIN INHALATION
     Route: 055
  21. COLISTIN [Suspect]
     Active Substance: COLISTIN
     Dosage: 3 MILLION IU, 3X/DAY
     Route: 042

REACTIONS (5)
  - Pancytopenia [Fatal]
  - Dyspnoea at rest [Fatal]
  - Inflammatory marker increased [Fatal]
  - Condition aggravated [Fatal]
  - Drug ineffective [Fatal]
